FAERS Safety Report 17935030 (Version 1)
Quarter: 2020Q2

REPORT INFORMATION
  Report Type: Spontaneous
  Country: US (occurrence: US)
  Receive Date: 20200623
  Receipt Date: 20200623
  Transmission Date: 20200714
  Serious: No
  Sender: FDA-Public Use
  Company Number: None

PATIENT
  Sex: Female

DRUGS (1)
  1. NYS CLEAN HAND SANITIZER [Suspect]
     Active Substance: ALCOHOL
     Indication: OCCUPATIONAL EXPOSURE TO SARS-COV-2

REACTIONS (7)
  - Headache [None]
  - Pulmonary sensitisation [None]
  - Nausea [None]
  - Toxicity to various agents [None]
  - Skin sensitisation [None]
  - Eye irritation [None]
  - Cough [None]
